FAERS Safety Report 15110991 (Version 1)
Quarter: 2018Q3

REPORT INFORMATION
  Report Type: Spontaneous
  Country: IE (occurrence: IE)
  Receive Date: 20180705
  Receipt Date: 20180705
  Transmission Date: 20181010
  Serious: Yes (Hospitalization)
  Sender: FDA-Public Use
  Company Number: IE-IMPAX LABORATORIES, INC-2018-IPXL-02283

PATIENT
  Age: 42 Year
  Sex: Female

DRUGS (6)
  1. CLOBAZAM [Concomitant]
     Active Substance: CLOBAZAM
     Dosage: 10 MG, TID
     Route: 065
  2. LAMOTRIGINE ODT [Suspect]
     Active Substance: LAMOTRIGINE
     Indication: TEMPORAL LOBE EPILEPSY
     Dosage: UNK
     Route: 065
  3. ESCITALOPRAM [Interacting]
     Active Substance: ESCITALOPRAM OXALATE
     Indication: GENERALISED ANXIETY DISORDER
     Dosage: 5 MG, 1 /DAY
     Route: 065
  4. CLOBAZAM [Concomitant]
     Active Substance: CLOBAZAM
     Indication: TEMPORAL LOBE EPILEPSY
     Dosage: 10 MG, BID
     Route: 065
  5. LAMOTRIGINE ODT [Interacting]
     Active Substance: LAMOTRIGINE
     Dosage: UNK, EVENING DOSE HELD
     Route: 065
  6. ESCITALOPRAM [Interacting]
     Active Substance: ESCITALOPRAM OXALATE
     Dosage: 10 MG, 1 /DAY
     Route: 065

REACTIONS (3)
  - Toxicity to various agents [Recovered/Resolved]
  - Cerebellar syndrome [Recovered/Resolved]
  - Drug interaction [Recovered/Resolved]
